FAERS Safety Report 6785725-5 (Version None)
Quarter: 2010Q2

REPORT INFORMATION
  Report Type: 
  Country: None (occurrence: None)
  Receive Date: 20100623
  Receipt Date: 20100618
  Transmission Date: 20101027
  Serious: Yes (Death)
  Sender: FDA-Public Use
  Company Number: PHHY2010CA39157

PATIENT
  Sex: Male

DRUGS (2)
  1. CLOZARIL [Suspect]
     Indication: PSYCHOTIC DISORDER
     Dosage: 200 MG, BID
     Route: 048
     Dates: start: 20010808
  2. EPIVAL [Concomitant]
     Dosage: 1500 MG, QD
     Route: 048

REACTIONS (1)
  - LUNG NEOPLASM MALIGNANT [None]
